FAERS Safety Report 4669546-5 (Version None)
Quarter: 2005Q2

REPORT INFORMATION
  Report Type: 
  Country: None (occurrence: None)
  Receive Date: 20050523
  Receipt Date: 20050513
  Transmission Date: 20051028
  Serious: Yes (Other)
  Sender: FDA-Public Use
  Company Number: PHFR2005GB01807

PATIENT
  Age: 34 Year
  Sex: Female

DRUGS (2)
  1. RITALIN [Suspect]
     Indication: ATTENTION DEFICIT/HYPERACTIVITY DISORDER
     Dosage: 60MG/DAY
     Route: 048
     Dates: start: 20020201
  2. THYROXINE [Concomitant]
     Route: 065

REACTIONS (3)
  - EROSIVE OESOPHAGITIS [None]
  - GASTRITIS ATROPHIC [None]
  - ULCER [None]
